FAERS Safety Report 8779244 (Version 1)
Quarter: 2012Q4

REPORT INFORMATION
  Report Type: 
  Country: BR (occurrence: BR)
  Receive Date: 20120912
  Receipt Date: 20120912
  Transmission Date: 20130627
  Serious: Yes (Hospitalization)
  Sender: FDA-Public Use
  Company Number: BR-BRISTOL-MYERS SQUIBB COMPANY-16935553

PATIENT
  Age: 76 Year
  Sex: Female

DRUGS (3)
  1. ONGLYZA TABS 5 MG [Suspect]
     Route: 048
     Dates: start: 2012
  2. LEVEMIR [Concomitant]
  3. HUMALOG [Concomitant]

REACTIONS (1)
  - Cataract [Unknown]
